FAERS Safety Report 12856195 (Version 1)
Quarter: 2016Q4

REPORT INFORMATION
  Report Type: Spontaneous
  Country: FR (occurrence: FR)
  Receive Date: 20161018
  Receipt Date: 20161018
  Transmission Date: 20170207
  Serious: Yes (Hospitalization, Other)
  Sender: FDA-Public Use
  Company Number: FR-PFIZER INC-2016468548

PATIENT
  Age: 27 Year
  Sex: Male

DRUGS (14)
  1. METHOTREXATE (METHOTREXATE SODIUM) [Suspect]
     Active Substance: METHOTREXATE SODIUM
     Indication: ACUTE MYELOID LEUKAEMIA
     Dosage: 15 MG, CYCLIC
     Route: 037
     Dates: start: 20160816, end: 20160826
  2. VANCOMYCIN [Concomitant]
     Active Substance: VANCOMYCIN
  3. MORPHINE [Concomitant]
     Active Substance: MORPHINE
  4. ARACYTINE [Suspect]
     Active Substance: CYTARABINE
     Indication: ACUTE MYELOID LEUKAEMIA
     Dosage: 40 MG, CYCLIC
     Route: 037
     Dates: start: 20160816, end: 20160826
  5. CYTARABINE. [Concomitant]
     Active Substance: CYTARABINE
     Indication: ACUTE MYELOID LEUKAEMIA
     Dosage: 195 MG, 2X/DAY
     Route: 042
     Dates: start: 20160802, end: 20160814
  6. NOXAFIL [Concomitant]
     Active Substance: POSACONAZOLE
  7. DEPO-MEDROL [Suspect]
     Active Substance: METHYLPREDNISOLONE ACETATE
     Indication: ACUTE MYELOID LEUKAEMIA
     Dosage: 40 MG, CYCLIC
     Route: 037
     Dates: start: 20160816, end: 20160826
  8. ROVAMYCIN [Concomitant]
     Active Substance: SPIRAMYCIN
  9. IMIPENEM [Concomitant]
     Active Substance: IMIPENEM
  10. CERUBIDINE [Concomitant]
     Active Substance: DAUNORUBICIN HYDROCHLORIDE
     Indication: ACUTE MYELOID LEUKAEMIA
     Dosage: 176 MG, 1X/DAY
     Route: 042
     Dates: start: 20160808, end: 20160810
  11. AMIKACIN [Concomitant]
     Active Substance: AMIKACIN
  12. TAZOBACTAM [Concomitant]
     Active Substance: TAZOBACTAM
  13. ACICLOVIR [Concomitant]
     Active Substance: ACYCLOVIR
  14. PIPERACILLIN [Concomitant]
     Active Substance: PIPERACILLIN

REACTIONS (1)
  - Leukoencephalopathy [Recovered/Resolved]

NARRATIVE: CASE EVENT DATE: 20160828
